FAERS Safety Report 16502497 (Version 1)
Quarter: 2019Q3

REPORT INFORMATION
  Report Type: Spontaneous
  Country: US (occurrence: US)
  Receive Date: 20190630
  Receipt Date: 20190630
  Transmission Date: 20191004
  Serious: Yes (Life-Threatening, Hospitalization, Disabling)
  Sender: FDA-Public Use
  Company Number: None

PATIENT
  Age: 50 Year
  Sex: Male
  Weight: 94.05 kg

DRUGS (1)
  1. NEW U LIFE SOMADERM HGH GEL [Suspect]
     Active Substance: HOMEOPATHICS
     Indication: SLEEP DISORDER
     Route: 061

REACTIONS (2)
  - Neoplasm malignant [None]
  - Neoplasm of thymus [None]

NARRATIVE: CASE EVENT DATE: 20181101
